FAERS Safety Report 6752476-2 (Version None)
Quarter: 2010Q2

REPORT INFORMATION
  Report Type: 
  Country: None (occurrence: None)
  Receive Date: 20100602
  Receipt Date: 20100409
  Transmission Date: 20101027
  Serious: No
  Sender: FDA-Public Use
  Company Number: PR-KINGPHARMUSA00001-K201000432

PATIENT

DRUGS (1)
  1. CORTISPORIN [Suspect]
     Dosage: UNK
     Route: 031

REACTIONS (1)
  - WRONG DRUG ADMINISTERED [None]
